FAERS Safety Report 9665844 (Version 1)
Quarter: 2013Q4

REPORT INFORMATION
  Report Type: Spontaneous
  Country: US (occurrence: None)
  Receive Date: 20131031
  Receipt Date: 20131031
  Transmission Date: 20140711
  Serious: Yes (Hospitalization)
  Sender: FDA-Public Use
  Company Number: None

PATIENT
  Age: 25 Year
  Sex: Female

DRUGS (1)
  1. QUETIAPINE [Suspect]
     Indication: SLEEP DISORDER THERAPY
     Dosage: 30, ONCE DAILY AT BEDTIME, BY MOUTH
     Route: 048
     Dates: start: 20130611, end: 20130703

REACTIONS (5)
  - Heart rate irregular [None]
  - Convulsion [None]
  - Body temperature fluctuation [None]
  - Fatigue [None]
  - Headache [None]
